FAERS Safety Report 8152077 (Version 3)
Quarter: 2013Q3

REPORT INFORMATION
  Report Type: Report from Study
  Country: RU (occurrence: RU)
  Receive Date: 20110922
  Receipt Date: 20130906
  Transmission Date: 20140515
  Serious: Yes (Death)
  Sender: FDA-Public Use
  Company Number: PHHO2011RU15761

PATIENT
  Age: 72 Year
  Sex: Male
  Weight: 65.1 kg

DRUGS (5)
  1. WARFARIN [Suspect]
     Indication: ATRIAL FIBRILLATION
     Dosage: 2.5 MG, QD
     Route: 048
     Dates: start: 20101207
  2. ALISKIREN [Suspect]
     Indication: CARDIAC FAILURE ACUTE
     Dosage: UNK
     Route: 048
     Dates: start: 20101114, end: 20101206
  3. ALISKIREN [Suspect]
     Dosage: UNK
     Route: 048
     Dates: start: 20101207, end: 20110523
  4. ALISKIREN [Suspect]
     Dosage: UNK
     Route: 048
     Dates: start: 20110531, end: 20110913
  5. OMEPRAZOLE [Concomitant]
     Indication: DUODENAL ULCER
     Dosage: 20 MG, QD
     Route: 048
     Dates: start: 20101124

REACTIONS (2)
  - Intestinal haemorrhage [Fatal]
  - Concomitant disease progression [Fatal]
